FAERS Safety Report 20833020 (Version 1)
Quarter: 2022Q2

REPORT INFORMATION
  Report Type: Spontaneous
  Country: US (occurrence: None)
  Receive Date: 20220514
  Receipt Date: 20220514
  Transmission Date: 20220721
  Serious: No
  Sender: FDA-Public Use
  Company Number: None

PATIENT
  Sex: Male

DRUGS (2)
  1. OPSUMIT [Suspect]
     Active Substance: MACITENTAN
     Indication: Pulmonary arterial hypertension
     Dosage: 10 MG DAILY ORAL?
     Route: 048
     Dates: start: 202104
  2. ADEMPAS [Suspect]
     Active Substance: RIOCIGUAT

REACTIONS (2)
  - Peripheral swelling [None]
  - Peripheral swelling [None]
